FAERS Safety Report 4376037-8 (Version None)
Quarter: 2004Q2

REPORT INFORMATION
  Report Type: 
  Country: None (occurrence: None)
  Receive Date: 20040609
  Receipt Date: 20040609
  Transmission Date: 20050107
  Serious: Yes (Hospitalization)
  Sender: FDA-Public Use
  Company Number: None

PATIENT
  Sex: Male
  Weight: 64 kg

DRUGS (6)
  1. DILANTIN [Suspect]
     Indication: CONVULSION
     Dosage: 1.5 G IV X 1 DOSE
     Route: 042
  2. HEPARIN [Concomitant]
  3. ATIVAN [Concomitant]
  4. LANSOPRAZOLE [Concomitant]
  5. ASPIRIN [Concomitant]
  6. METOPROLOL TARTRATE [Concomitant]

REACTIONS (4)
  - CONFUSIONAL STATE [None]
  - DRUG LEVEL INCREASED [None]
  - DYSARTHRIA [None]
  - SEDATION [None]
